FAERS Safety Report 8348113-6 (Version None)
Quarter: 2012Q2

REPORT INFORMATION
  Report Type: 
  Country: None (occurrence: None)
  Receive Date: 20120509
  Receipt Date: 20120504
  Transmission Date: 20120825
  Serious: Yes (Hospitalization)
  Sender: FDA-Public Use
  Company Number: US-BAYER-2011-085293

PATIENT
  Age: 16 Year
  Sex: Female
  Weight: 102 kg

DRUGS (7)
  1. YAZ [Suspect]
     Dosage: UNK
     Dates: start: 20070201, end: 20080301
  2. TORADOL [Concomitant]
     Dosage: UNK
     Dates: start: 20071119
  3. FEMCON FE [Concomitant]
  4. AMOXICILLIN [Concomitant]
     Dosage: 875 MG, UNK
  5. DARVOCET [Concomitant]
  6. PHENERGAN [Concomitant]
  7. HYDROXYZINE PAMOATE [Concomitant]
     Dosage: 50 MG, UNK

REACTIONS (4)
  - CHOLECYSTITIS [None]
  - FEAR [None]
  - CHOLECYSTITIS ACUTE [None]
  - PAIN [None]
